FAERS Safety Report 19271206 (Version 1)
Quarter: 2021Q2

REPORT INFORMATION
  Report Type: Spontaneous
  Country: US (occurrence: US)
  Receive Date: 20210518
  Receipt Date: 20210518
  Transmission Date: 20210717
  Serious: No
  Sender: FDA-Public Use
  Company Number: US-BAYER-2021-143219

PATIENT
  Age: 69 Year
  Sex: Female

DRUGS (1)
  1. MIRALAX [Suspect]
     Active Substance: POLYETHYLENE GLYCOL 3350
     Indication: COLONOSCOPY
     Dosage: ;1 CUP LAST FRIDAY, USUALLY CONSUMER WAIT FOR AT LEAST 2?3 DAYS FOR THE EFFICACY DOSE
     Route: 048
     Dates: start: 20210515

REACTIONS (2)
  - Off label use [None]
  - Nausea [Recovered/Resolved]

NARRATIVE: CASE EVENT DATE: 20210516
